FAERS Safety Report 5013480-8 (Version None)
Quarter: 2006Q2

REPORT INFORMATION
  Report Type: 
  Country: None (occurrence: None)
  Receive Date: 20060530
  Receipt Date: 20060522
  Transmission Date: 20061013
  Serious: Yes (Life-Threatening, Hospitalization)
  Sender: FDA-Public Use
  Company Number: 2006AC00984

PATIENT
  Age: 50 Year
  Sex: Male

DRUGS (12)
  1. MEPIVACAINE HCL [Suspect]
     Indication: NERVE BLOCK
     Route: 053
  2. METOPROLOL [Interacting]
  3. OMEPRAZOLE [Interacting]
  4. AMITRIPTYLINE HCL [Interacting]
  5. CAFFEINE [Interacting]
     Dosage: 1-2 CUPS COFFEE EVERY MORNING, 4 CUPS GREEN TEA IN THE EVENING
  6. GRAPEFRUIT JUICE [Interacting]
     Dosage: UP TO 64 OUNCES PER WEEK
  7. SERTRALINE HCL [Interacting]
  8. CYCLOBENZAPRINE HCL [Interacting]
  9. NIFEDIPINE [Concomitant]
  10. ASPIRIN [Concomitant]
  11. INSULIN [Concomitant]
  12. TETRACAINE POLYGYL STERILE OPHTHALMIC SOLUTION [Concomitant]
     Indication: NERVE BLOCK
     Dosage: WITH EPINEPHRINE 3 UG/ML
     Route: 053

REACTIONS (9)
  - ATRIOVENTRICULAR BLOCK COMPLETE [None]
  - BRADYCARDIA [None]
  - CARDIAC ARREST [None]
  - DRUG INTERACTION [None]
  - DRUG LEVEL INCREASED [None]
  - DRUG TOXICITY [None]
  - FOOD INTERACTION [None]
  - HYPOTENSION [None]
  - LABELLED DRUG-FOOD INTERACTION MEDICATION ERROR [None]
